FAERS Safety Report 19906267 (Version 2)
Quarter: 2021Q4

REPORT INFORMATION
  Report Type: Spontaneous
  Country: DE (occurrence: DE)
  Receive Date: 20211001
  Receipt Date: 20211014
  Transmission Date: 20220303
  Serious: Yes (Hospitalization, Other)
  Sender: FDA-Public Use
  Company Number: DE-ADRED-06462-01

PATIENT
  Age: 83 Year
  Sex: Female

DRUGS (8)
  1. TORSEMIDE [Suspect]
     Active Substance: TORSEMIDE
     Indication: Product used for unknown indication
     Dosage: 5 MG, 1-0-0-0, TABLET
     Route: 048
  2. ENALAPRIL [Suspect]
     Active Substance: ENALAPRIL
     Indication: Product used for unknown indication
     Dosage: 20 MG, 1-0-0-0, TABLET
     Route: 048
  3. ASPIRIN [Suspect]
     Active Substance: ASPIRIN
     Indication: Product used for unknown indication
     Dosage: 100 MG, 1-0-0-0, TABLET
     Route: 048
  4. SPIRONOLACTONE [Suspect]
     Active Substance: SPIRONOLACTONE
     Indication: Product used for unknown indication
     Dosage: 50 MG, 0.5-0-0-0, TABLET
     Route: 048
  5. RANEXA [Suspect]
     Active Substance: RANOLAZINE
     Dosage: 375 MG, 1-0-1-0, TABLET
     Route: 048
  6. PANTOPRAZOLE [Concomitant]
     Active Substance: PANTOPRAZOLE
     Dosage: 40 MG, 1-0-0-0, TABLETTEN
     Route: 048
  7. METOPROLOL [Concomitant]
     Active Substance: METOPROLOL
     Dosage: 47.5 MG, 1-0-0-0, TABLETTEN
     Route: 048
  8. PRAMIPEXOLE [Concomitant]
     Active Substance: PRAMIPEXOLE
     Dosage: 1.05 MG, 0-0-1-0, TABLETTEN
     Route: 048

REACTIONS (4)
  - Acute kidney injury [Unknown]
  - Dyspnoea exertional [Recovering/Resolving]
  - Peripheral swelling [Recovering/Resolving]
  - Dyspnoea [Recovering/Resolving]
